FAERS Safety Report 9853531 (Version 1)
Quarter: 2014Q1

REPORT INFORMATION
  Report Type: Spontaneous
  Country: GB (occurrence: GB)
  Receive Date: 20140129
  Receipt Date: 20140129
  Transmission Date: 20141002
  Serious: Yes (Other)
  Sender: FDA-Public Use
  Company Number: GB-TEVA-459095ISR

PATIENT
  Age: 57 Year
  Sex: Male

DRUGS (6)
  1. BISOPROLOL [Suspect]
     Indication: CARDIAC FAILURE
     Route: 048
     Dates: start: 20131122, end: 20140106
  2. LOSARTAN [Concomitant]
     Indication: CARDIAC FAILURE
     Dosage: 50 MILLIGRAM DAILY; ONGOING.
     Route: 048
     Dates: start: 20130815
  3. FUROSEMIDE [Concomitant]
     Indication: CARDIAC FAILURE
     Dosage: 40 MILLIGRAM DAILY; ONGOING.
     Route: 048
     Dates: start: 201302
  4. LANSOPRAZOLE [Concomitant]
     Indication: PROPHYLAXIS
     Dosage: 30 MILLIGRAM DAILY; ONGOING.
     Route: 048
     Dates: start: 201302
  5. ASPIRIN [Concomitant]
     Indication: ANTICOAGULANT THERAPY
     Dosage: 75 MILLIGRAM DAILY; ONGOING.
     Route: 048
     Dates: start: 201306
  6. SIMVASTATIN [Concomitant]
     Indication: BLOOD CHOLESTEROL INCREASED
     Dosage: 40 MILLIGRAM DAILY;
     Route: 048
     Dates: start: 20130412, end: 20131230

REACTIONS (4)
  - Mouth ulceration [Recovered/Resolved]
  - Skin tightness [Recovered/Resolved]
  - Skin fissures [Recovered/Resolved]
  - Penis disorder [Recovered/Resolved]
